FAERS Safety Report 24885555 (Version 2)
Quarter: 2025Q2

REPORT INFORMATION
  Report Type: Report from Study
  Country: US (occurrence: US)
  Receive Date: 20250125
  Receipt Date: 20250519
  Transmission Date: 20250716
  Serious: Yes (Other)
  Sender: ABBVIE
  Company Number: US-ABBVIE-6096765

PATIENT
  Age: 61 Year
  Sex: Female

DRUGS (2)
  1. SKYRIZI [Suspect]
     Active Substance: RISANKIZUMAB-RZAA
     Indication: Crohn^s disease
     Route: 058
     Dates: start: 20230428
  2. SKYRIZI [Suspect]
     Active Substance: RISANKIZUMAB-RZAA
     Route: 058

REACTIONS (6)
  - Hip arthroplasty [Unknown]
  - Surgery [Unknown]
  - Surgery [Unknown]
  - Procedural pain [Unknown]
  - Abdominal pain upper [Not Recovered/Not Resolved]
  - Multiple allergies [Recovering/Resolving]

NARRATIVE: CASE EVENT DATE: 20240101
